FAERS Safety Report 5843203-1 (Version None)
Quarter: 2008Q3

REPORT INFORMATION
  Report Type: 
  Country: None (occurrence: None)
  Receive Date: 20080813
  Receipt Date: 20080804
  Transmission Date: 20090109
  Serious: Yes (Other)
  Sender: FDA-Public Use
  Company Number: PHHY2008DE17080

PATIENT
  Sex: Female

DRUGS (2)
  1. CLOZAPINE [Suspect]
     Indication: SCHIZOPHRENIA
     Dosage: 100 MG, BID
     Route: 048
  2. LORAZEPAM [Suspect]
     Indication: ANXIETY
     Dosage: 1 MG/DAY
     Route: 048
     Dates: start: 20080802, end: 20080802

REACTIONS (4)
  - BLOOD PRESSURE DECREASED [None]
  - CONFUSIONAL STATE [None]
  - DEHYDRATION [None]
  - RESPIRATORY DEPRESSION [None]
